FAERS Safety Report 8095380-2 (Version None)
Quarter: 2012Q1

REPORT INFORMATION
  Report Type: 
  Country: None (occurrence: None)
  Receive Date: 20120131
  Receipt Date: 20120118
  Transmission Date: 20120608
  Serious: Yes (Hospitalization)
  Sender: FDA-Public Use
  Company Number: SK-UCBSA-045274

PATIENT
  Age: 74 Year
  Sex: Female
  Weight: 82 kg

DRUGS (28)
  1. BISOPROLOL FUMARATE [Concomitant]
     Indication: MYOCARDIAL ISCHAEMIA
  2. ZOPICLON [Concomitant]
     Indication: INSOMNIA
     Dates: start: 20111016, end: 20111001
  3. ANOPYRIN [Concomitant]
     Indication: THROMBOSIS PROPHYLAXIS
  4. LYRICA [Concomitant]
     Indication: NEURALGIA
     Dates: start: 20100923
  5. CAVINTON FORTE [Concomitant]
     Indication: ENCEPHALOPATHY
     Dates: start: 20110921, end: 20111108
  6. CARBIDOPA AND LEVODOPA [Concomitant]
     Dates: start: 20100930, end: 20101002
  7. NEUPRO [Suspect]
     Indication: PARKINSON'S DISEASE
     Route: 062
     Dates: start: 20110223, end: 20111108
  8. CARBIDOPA AND LEVODOPA [Concomitant]
     Dates: start: 20100923, end: 20100926
  9. NOOTROPIL [Concomitant]
     Indication: COGNITIVE DISORDER
  10. NEBIVOLOL HCL [Concomitant]
     Indication: HYPERTENSION
  11. AMICLOTON [Concomitant]
     Indication: HYPERTENSION
     Dates: end: 20111016
  12. CARBIDOPA AND LEVODOPA [Concomitant]
     Dates: start: 20101003, end: 20110120
  13. NEUPRO [Suspect]
     Route: 062
     Dates: start: 20110208, end: 20110214
  14. NEUPRO [Suspect]
     Route: 062
     Dates: start: 20110201, end: 20110207
  15. ALPHA D3 [Concomitant]
     Indication: OSTEOPOROSIS PROPHYLAXIS
     Dates: start: 20110120
  16. CAVINTON FORTE [Concomitant]
     Dates: start: 20111109
  17. CARBIDOPA AND LEVODOPA [Concomitant]
     Indication: PARKINSON'S DISEASE
     Dates: start: 20110121
  18. CARBIDOPA AND LEVODOPA [Concomitant]
     Dates: start: 20100927, end: 20100929
  19. TIAPRIDAL [Concomitant]
     Indication: CONFUSIONAL STATE
     Dates: start: 20111016, end: 20111001
  20. NEUPRO [Suspect]
     Route: 062
     Dates: start: 20110215, end: 20110222
  21. POTASSIUM CHLORIDE [Suspect]
     Indication: HYPOKALAEMIA
  22. COSTI [Concomitant]
     Indication: PROPHYLAXIS
     Dates: start: 20100921
  23. FUROSEMIDE [Concomitant]
     Indication: CHRONIC ALLOGRAFT NEPHROPATHY
  24. OMEPRAZOLE [Concomitant]
     Indication: PROPHYLAXIS
  25. ALLOPURINOL [Concomitant]
     Indication: HYPERURICAEMIA
  26. SIMVOR [Concomitant]
     Indication: HYPERCHOLESTEROLAEMIA
     Dates: end: 20111001
  27. RAMIPRIL [Concomitant]
     Indication: HYPERTENSION
  28. VINPOCETIN COVEX [Concomitant]
     Indication: VASCULAR ENCEPHALOPATHY
     Dates: start: 20100823, end: 20110920

REACTIONS (1)
  - RENAL FAILURE ACUTE [None]
